FAERS Safety Report 5261543-4 (Version None)
Quarter: 2007Q1

REPORT INFORMATION
  Report Type: 
  Country: None (occurrence: None)
  Receive Date: 20070307
  Receipt Date: 20070226
  Transmission Date: 20070707
  Serious: Yes (Life-Threatening)
  Sender: FDA-Public Use
  Company Number: 2007-00481

PATIENT
  Age: 80 Year
  Sex: Female

DRUGS (1)
  1. VELCADE [Suspect]
     Indication: MULTIPLE MYELOMA
     Dosage: 1.30 MG/M2
     Dates: start: 20070119, end: 20070122

REACTIONS (3)
  - BACTERIAL INFECTION [None]
  - INTERSTITIAL LUNG DISEASE [None]
  - SUPERINFECTION [None]
